FAERS Safety Report 7931662-X (Version None)
Quarter: 2011Q4

REPORT INFORMATION
  Report Type: 
  Country: None (occurrence: None)
  Receive Date: 20111121
  Receipt Date: 20111110
  Transmission Date: 20120403
  Serious: Yes (Hospitalization, Other)
  Sender: FDA-Public Use
  Company Number: PHHY2010CA70592

PATIENT
  Sex: Male

DRUGS (2)
  1. SANDOSTATIN LAR [Suspect]
     Indication: NEUROENDOCRINE TUMOUR
     Dosage: 30 MG, QMO
     Route: 030
     Dates: start: 20101018
  2. SANDOSTATIN LAR [Suspect]
     Dosage: 30 MG, EVERY 4 WEEKS
     Route: 030

REACTIONS (6)
  - BLOOD PRESSURE SYSTOLIC INCREASED [None]
  - DISCOMFORT [None]
  - MYOCARDIAL INFARCTION [None]
  - HEART RATE IRREGULAR [None]
  - NEEDLE ISSUE [None]
  - INJECTION SITE HAEMORRHAGE [None]
